FAERS Safety Report 4797302-6 (Version None)
Quarter: 2005Q4

REPORT INFORMATION
  Report Type: 
  Country: None (occurrence: None)
  Receive Date: 20051013
  Receipt Date: 20051011
  Transmission Date: 20060501
  Serious: Yes (Congenital Anomaly)
  Sender: FDA-Public Use
  Company Number: GB-GLAXOSMITHKLINE-B0396989B

PATIENT
  Sex: Female

DRUGS (4)
  1. SEROXAT [Suspect]
  2. VALIUM [Suspect]
  3. BETA-BLOCKER [Suspect]
  4. TRICYCLIC ANTI DEPRESSANT [Suspect]

REACTIONS (9)
  - CARDIAC DISORDER [None]
  - CLEFT PALATE [None]
  - CONGENITAL ANOMALY [None]
  - DRUG EXPOSURE DURING PREGNANCY [None]
  - HEART DISEASE CONGENITAL [None]
  - HEREDITARY DISORDER [None]
  - PALATAL DISORDER [None]
  - SMALL FOR DATES BABY [None]
  - SPEECH DISORDER [None]
